FAERS Safety Report 5246614-0 (Version None)
Quarter: 2007Q1

REPORT INFORMATION
  Report Type: 
  Country: None (occurrence: None)
  Receive Date: 20070222
  Receipt Date: 20070222
  Transmission Date: 20070707
  Serious: Yes (Hospitalization)
  Sender: FDA-Public Use
  Company Number: None

PATIENT
  Sex: Male
  Weight: 31.2 kg

DRUGS (1)
  1. ZOLOFT [Suspect]
     Indication: ABNORMAL BEHAVIOUR
     Dosage: 50 MG DAILY PO
     Route: 048

REACTIONS (7)
  - AGGRESSION [None]
  - AGITATION [None]
  - DIARRHOEA [None]
  - EYE ROLLING [None]
  - HYPERTONIA [None]
  - RHABDOMYOLYSIS [None]
  - SEROTONIN SYNDROME [None]
